FAERS Safety Report 4821484-0 (Version None)
Quarter: 2005Q4

REPORT INFORMATION
  Report Type: 
  Country: None (occurrence: None)
  Receive Date: 20051107
  Receipt Date: 20051026
  Transmission Date: 20060501
  Serious: Yes (Hospitalization)
  Sender: FDA-Public Use
  Company Number: CA-GLAXOSMITHKLINE-A0579686A

PATIENT
  Age: 66 Year
  Sex: Male

DRUGS (3)
  1. TOPOTECAN [Suspect]
     Indication: NON-SMALL CELL LUNG CANCER
     Dosage: 3.5MGM2 CYCLIC
     Route: 042
     Dates: start: 20051006
  2. TAXOTERE [Suspect]
     Indication: NON-SMALL CELL LUNG CANCER
     Dosage: 30MGM2 CYCLIC
     Route: 042
     Dates: start: 20051006
  3. LEVAQUIN [Concomitant]
     Route: 048
     Dates: start: 20051020

REACTIONS (7)
  - ABDOMINAL PAIN LOWER [None]
  - ABSCESS INTESTINAL [None]
  - DIVERTICULUM [None]
  - DYSPNOEA [None]
  - INTESTINAL PERFORATION [None]
  - NAUSEA [None]
  - PERITONITIS [None]
